FAERS Safety Report 7542830-3 (Version None)
Quarter: 2011Q2

REPORT INFORMATION
  Report Type: 
  Country: None (occurrence: None)
  Receive Date: 20110524
  Receipt Date: 20110304
  Transmission Date: 20111010
  Serious: No
  Sender: FDA-Public Use
  Company Number: 019123

PATIENT
  Sex: Female
  Weight: 66.2 kg

DRUGS (8)
  1. ARAVA [Concomitant]
  2. ACETAMINOPHEN [Concomitant]
  3. HYDROCODONE [Concomitant]
  4. CIMZIA [Suspect]
     Indication: RHEUMATOID ARTHRITIS
     Dosage: (400 MG 1X/4 WEEKS SUBCUTANEOUS)
     Route: 058
     Dates: start: 20100917
  5. PRILOSEC [Concomitant]
  6. ZOLOFT [Concomitant]
  7. CORAL CALCIUM [Concomitant]
  8. SYNTHROID [Concomitant]

REACTIONS (2)
  - FATIGUE [None]
  - EXFOLIATIVE RASH [None]
